FAERS Safety Report 8152768-9 (Version None)
Quarter: 2012Q1

REPORT INFORMATION
  Report Type: 
  Country: None (occurrence: None)
  Receive Date: 20120221
  Receipt Date: 20120209
  Transmission Date: 20120608
  Serious: Yes (Other)
  Sender: FDA-Public Use
  Company Number: US-PFIZER INC-2012033155

PATIENT
  Sex: Male

DRUGS (2)
  1. SUTENT [Suspect]
     Indication: METASTATIC RENAL CELL CARCINOMA
     Dosage: 50 MG, 1X/DAY
     Dates: start: 20111106, end: 20111125
  2. SUTENT [Suspect]
     Dosage: 37.5 MG, 1X/DAY
     Route: 048
     Dates: start: 20111101, end: 20120207

REACTIONS (6)
  - URETHRAL HAEMORRHAGE [None]
  - LIP SWELLING [None]
  - SCRATCH [None]
  - PRURITUS [None]
  - RASH [None]
  - SKIN HAEMORRHAGE [None]
